FAERS Safety Report 16068770 (Version 1)
Quarter: 2019Q1

REPORT INFORMATION
  Report Type: Spontaneous
  Country: CN (occurrence: CN)
  Receive Date: 20190313
  Receipt Date: 20190313
  Transmission Date: 20190418
  Serious: Yes (Hospitalization)
  Sender: FDA-Public Use
  Company Number: CN-ELI_LILLY_AND_COMPANY-CN201903004302

PATIENT
  Sex: Male

DRUGS (1)
  1. HUMALOG [Suspect]
     Active Substance: INSULIN LISPRO
     Indication: PRODUCT USED FOR UNKNOWN INDICATION
     Dosage: UNK, UNKNOWN
     Route: 065
     Dates: start: 2013

REACTIONS (6)
  - Weight increased [Unknown]
  - Retinal detachment [Unknown]
  - Blood glucose abnormal [Unknown]
  - Hypoacusis [Unknown]
  - Renal disorder [Unknown]
  - Diabetic complication [Unknown]

NARRATIVE: CASE EVENT DATE: 2018
